FAERS Safety Report 6791798-6 (Version None)
Quarter: 2010Q2

REPORT INFORMATION
  Report Type: 
  Country: None (occurrence: None)
  Receive Date: 20100624
  Receipt Date: 20100615
  Transmission Date: 20101027
  Serious: Yes (Other)
  Sender: FDA-Public Use
  Company Number: US-PURDUE-USA-2010-0044509

PATIENT
  Sex: Male

DRUGS (2)
  1. OXYCONTIN [Suspect]
     Indication: DRUG USE FOR UNKNOWN INDICATION
     Dosage: 180 MG, DAILY
  2. OXYCODONE HCL [Suspect]
     Indication: OSTEONECROSIS

REACTIONS (3)
  - CEREBROVASCULAR ACCIDENT [None]
  - DRUG WITHDRAWAL SYNDROME [None]
  - HYPERTENSION [None]
